FAERS Safety Report 9530889 (Version 4)
Quarter: 2013Q4

REPORT INFORMATION
  Report Type: Spontaneous
  Country: US (occurrence: US)
  Receive Date: 20130918
  Receipt Date: 20131122
  Transmission Date: 20140711
  Serious: Yes (Other)
  Sender: FDA-Public Use
  Company Number: US-009507513-1309USA002344

PATIENT
  Age: 70 Year
  Sex: Female
  Weight: 70.3 kg

DRUGS (2)
  1. FOSAMAX [Suspect]
     Indication: OSTEOPENIA
     Dosage: UNK
     Route: 048
     Dates: end: 200909
  2. ALENDRONATE SODIUM [Suspect]
     Dosage: UNK
     Route: 048
     Dates: start: 200909, end: 20121207

REACTIONS (15)
  - Femur fracture [Unknown]
  - Surgery [Unknown]
  - Fall [Unknown]
  - Osteoporosis [Not Recovered/Not Resolved]
  - Pain [Recovered/Resolved]
  - Surgery [Unknown]
  - Impaired healing [Unknown]
  - Decreased activity [Unknown]
  - Osteoarthritis [Unknown]
  - Arthralgia [Unknown]
  - Hyperlipidaemia [Unknown]
  - Hypothyroidism [Unknown]
  - Depression [Unknown]
  - Gastrooesophageal reflux disease [Unknown]
  - Bunion operation [Unknown]
